FAERS Safety Report 25921087 (Version 1)
Quarter: 2025Q4

REPORT INFORMATION
  Report Type: Spontaneous
  Country: US (occurrence: US)
  Receive Date: 20251014
  Receipt Date: 20251014
  Transmission Date: 20260117
  Serious: Yes (Hospitalization, Other)
  Sender: FRESENIUS MEDICAL CARE
  Company Number: US-FMCRTG-FMC-2510-001568

PATIENT
  Age: 52 Year
  Sex: Male

DRUGS (1)
  1. DELFLEX [Suspect]
     Active Substance: CALCIUM CHLORIDE\DEXTROSE\MAGNESIUM CHLORIDE\SODIUM CHLORIDE\SODIUM LACTATE
     Indication: End stage renal disease
     Route: 033

REACTIONS (2)
  - Atrial fibrillation [Unknown]
  - Peritonitis bacterial [Unknown]

NARRATIVE: CASE EVENT DATE: 20250922
